FAERS Safety Report 14401106 (Version 1)
Quarter: 2018Q1

REPORT INFORMATION
  Report Type: Spontaneous
  Country: US (occurrence: US)
  Receive Date: 20180114
  Receipt Date: 20180114
  Transmission Date: 20180509
  Serious: Yes (Hospitalization)
  Sender: FDA-Public Use
  Company Number: None

PATIENT
  Age: 72 Year
  Sex: Male
  Weight: 103 kg

DRUGS (1)
  1. AMOXICILLIN/CLAVULANATE [Suspect]
     Active Substance: AMOXICILLIN\CLAVULANATE POTASSIUM
     Indication: ANTIBIOTIC PROPHYLAXIS
     Dates: start: 20171130, end: 20171208

REACTIONS (8)
  - Aspartate aminotransferase increased [None]
  - Rash [None]
  - Blood bilirubin increased [None]
  - Alanine aminotransferase increased [None]
  - Yellow skin [None]
  - Ocular icterus [None]
  - Pruritus [None]
  - Hepatic enzyme increased [None]

NARRATIVE: CASE EVENT DATE: 20171207
